FAERS Safety Report 17225013 (Version 1)
Quarter: 2020Q1

REPORT INFORMATION
  Report Type: Spontaneous
  Country: GB (occurrence: GB)
  Receive Date: 20200102
  Receipt Date: 20200102
  Transmission Date: 20200409
  Serious: Yes (Life-Threatening, Other)
  Sender: FDA-Public Use
  Company Number: GB-TEVA-2019-GB-1160345

PATIENT
  Age: 79 Year
  Sex: Female
  Weight: 46 kg

DRUGS (7)
  1. CETRABEN EMOLLIENT CREAM [Concomitant]
     Dosage: APPLY AS DIRECTED
     Dates: start: 20190905
  2. AMLODIPINE [Suspect]
     Active Substance: AMLODIPINE BESYLATE
     Dosage: 5 MG
  3. SILDENAFIL. [Concomitant]
     Active Substance: SILDENAFIL
     Dosage: 1 DAILY INCREASING WEEKLY TO MAINTENACE DOSE 20MG THREE TIMES A DAY
     Dates: start: 20191001
  4. DERMOL [Concomitant]
     Active Substance: BENZALKONIUM CHLORIDE\CHLORHEXIDINE HYDROCHLORIDE\ISOPROPYL MYRISTATE\PARAFFIN
     Dosage: USE AS DIRECTED
     Dates: start: 20190910
  5. BIMATOPROST. [Concomitant]
     Active Substance: BIMATOPROST
     Dosage: 1 GTT
     Dates: start: 20191107
  6. AMOXICILLIN. [Concomitant]
     Active Substance: AMOXICILLIN
     Dosage: 1500 MG
     Dates: start: 20191004
  7. FEXOFENADINE [Concomitant]
     Active Substance: FEXOFENADINE HYDROCHLORIDE
     Dosage: 180 MG
     Dates: start: 20190910

REACTIONS (2)
  - Rash [Recovered/Resolved]
  - Blister [Unknown]
